FAERS Safety Report 5777487-5 (Version None)
Quarter: 2008Q2

REPORT INFORMATION
  Report Type: 
  Country: None (occurrence: None)
  Receive Date: 20080616
  Receipt Date: 20080611
  Transmission Date: 20081010
  Serious: Yes (Death, Life-Threatening, Hospitalization)
  Sender: FDA-Public Use
  Company Number: 2008SP010019

PATIENT
  Age: 79 Year
  Sex: Female
  Weight: 53.6 kg

DRUGS (20)
  1. TEMODAR [Suspect]
     Indication: ACUTE MYELOID LEUKAEMIA
     Dosage: 160 MG;QD;PO, 320 MG;QD;PO
     Route: 048
     Dates: start: 20080430, end: 20080513
  2. TEMODAR [Suspect]
     Indication: ACUTE MYELOID LEUKAEMIA
     Dosage: 160 MG;QD;PO, 320 MG;QD;PO
     Route: 048
     Dates: start: 20080514, end: 20080520
  3. LISINOPRIL [Concomitant]
  4. CIPRO [Concomitant]
  5. FLAGYL [Concomitant]
  6. ATIVAN [Concomitant]
  7. HALDOL [Concomitant]
  8. TYLENOL [Concomitant]
  9. ISOPTO TEARS [Concomitant]
  10. SALIVA SUBSTITUTE [Concomitant]
  11. ATROPINE [Concomitant]
  12. ROBINUL [Concomitant]
  13. SENOKOT [Concomitant]
  14. ATIVAN [Concomitant]
  15. COMPAZINE [Concomitant]
  16. REGLAN [Concomitant]
  17. BENADRYL [Concomitant]
  18. MORPHINE [Concomitant]
  19. DILAUDID [Concomitant]
  20. MORPHINE [Concomitant]

REACTIONS (39)
  - ANAEMIA [None]
  - AORTIC VALVE STENOSIS [None]
  - ATELECTASIS [None]
  - ATRIAL FIBRILLATION [None]
  - BLAST CRISIS IN MYELOGENOUS LEUKAEMIA [None]
  - BLOOD SODIUM DECREASED [None]
  - CARDIO-RESPIRATORY ARREST [None]
  - COAGULOPATHY [None]
  - DEHYDRATION [None]
  - DIVERTICULITIS [None]
  - EMBOLISM [None]
  - FEBRILE NEUTROPENIA [None]
  - GENERAL PHYSICAL HEALTH DETERIORATION [None]
  - HAEMODILUTION [None]
  - HYPONATRAEMIA [None]
  - HYPOXIA [None]
  - LEUKOCYTOSIS [None]
  - LEUKOSTASIS [None]
  - LUNG CONSOLIDATION [None]
  - LUNG INFECTION [None]
  - LUNG INFILTRATION [None]
  - MALIGNANT NEOPLASM PROGRESSION [None]
  - NEUTROPENIA [None]
  - NO THERAPEUTIC RESPONSE [None]
  - PALLOR [None]
  - PETECHIAE [None]
  - PLATELET COUNT DECREASED [None]
  - PLEURAL EFFUSION [None]
  - PLEURISY [None]
  - PNEUMONITIS [None]
  - POLYDIPSIA [None]
  - RASH MACULO-PAPULAR [None]
  - REFUSAL OF TREATMENT BY PATIENT [None]
  - RENAL INFARCT [None]
  - RESPIRATORY DISTRESS [None]
  - SPLENIC INFARCTION [None]
  - SPLENOMEGALY [None]
  - THROMBOCYTOPENIA [None]
  - UNRESPONSIVE TO STIMULI [None]
